FAERS Safety Report 10416323 (Version 1)
Quarter: 2014Q3

REPORT INFORMATION
  Report Type: Spontaneous
  Country: US (occurrence: None)
  Receive Date: 20140827
  Receipt Date: 20140827
  Transmission Date: 20150326
  Serious: Yes (Life-Threatening, Hospitalization, Disabling, Other)
  Sender: FDA-Public Use
  Company Number: None

PATIENT
  Age: 27 Year
  Sex: Male
  Weight: 62.6 kg

DRUGS (1)
  1. INVEGA SUSTENNA [Suspect]
     Active Substance: PALIPERIDONE PALMITATE
     Indication: PSYCHOTIC DISORDER
     Dosage: 1 WEEK INTO THE MUSCLE
     Route: 030
     Dates: start: 20140803, end: 20140808

REACTIONS (8)
  - Musculoskeletal stiffness [None]
  - Hypoaesthesia [None]
  - Dyspnoea [None]
  - Drooling [None]
  - Malaise [None]
  - Speech disorder [None]
  - Feeling abnormal [None]
  - Disturbance in attention [None]

NARRATIVE: CASE EVENT DATE: 20140803
